FAERS Safety Report 5334508-1 (Version None)
Quarter: 2007Q2

REPORT INFORMATION
  Report Type: 
  Country: None (occurrence: None)
  Receive Date: 20070525
  Receipt Date: 20070523
  Transmission Date: 20071010
  Serious: Yes (Hospitalization)
  Sender: FDA-Public Use
  Company Number: US-ASTRAZENECA-2007UW07283

PATIENT
  Age: 24012 Day
  Sex: Male
  Weight: 87.3 kg

DRUGS (4)
  1. SEROQUEL [Suspect]
     Indication: BIPOLAR DISORDER
     Dosage: DOSAGE INCREASED
     Route: 048
     Dates: start: 20070410, end: 20070412
  2. SEROQUEL [Suspect]
     Indication: PSYCHOTIC DISORDER
     Dosage: DOSAGE INCREASED
     Route: 048
     Dates: start: 20070410, end: 20070412
  3. ABILIFY [Concomitant]
     Indication: BIPOLAR DISORDER
  4. ABILIFY [Concomitant]
     Indication: PSYCHOTIC DISORDER

REACTIONS (5)
  - BALANCE DISORDER [None]
  - DIZZINESS [None]
  - FATIGUE [None]
  - HEART RATE INCREASED [None]
  - VOMITING [None]
